FAERS Safety Report 17137890 (Version 1)
Quarter: 2019Q4

REPORT INFORMATION
  Report Type: Spontaneous
  Country: SE (occurrence: SE)
  Receive Date: 20191211
  Receipt Date: 20191211
  Transmission Date: 20200122
  Serious: Yes (Hospitalization)
  Sender: FDA-Public Use
  Company Number: SE-JNJFOC-20191213816

PATIENT
  Sex: Female
  Weight: 57 kg

DRUGS (4)
  1. ALVEDON [Suspect]
     Active Substance: ACETAMINOPHEN
     Indication: PRODUCT USED FOR UNKNOWN INDICATION
     Dosage: 2 BLISTERS
     Route: 048
     Dates: start: 20180623, end: 20180623
  2. PROPAVAN [Suspect]
     Active Substance: PROPIOMAZINE
     Indication: PRODUCT USED FOR UNKNOWN INDICATION
     Dosage: OK AMOUNT?PROPIOMAZINE/ PROPIOMAZINE MALEATE
     Route: 048
     Dates: start: 20180623, end: 20180623
  3. STESOLID [Suspect]
     Active Substance: DIAZEPAM
     Indication: PRODUCT USED FOR UNKNOWN INDICATION
     Route: 048
     Dates: start: 20180623, end: 20180623
  4. IPREN UNSPECIFIED [Suspect]
     Active Substance: IBUPROFEN
     Indication: PRODUCT USED FOR UNKNOWN INDICATION
     Dosage: 2 BLISTERS?IBUPROFEN/ IBUPROFEN DC 85
     Route: 048
     Dates: start: 20180623, end: 20180623

REACTIONS (3)
  - Depressed level of consciousness [Unknown]
  - Intentional self-injury [Unknown]
  - Intentional overdose [Unknown]

NARRATIVE: CASE EVENT DATE: 20180623
